FAERS Safety Report 14765438 (Version 1)
Quarter: 2018Q2

REPORT INFORMATION
  Report Type: Report from Study
  Country: ES (occurrence: ES)
  Receive Date: 20180416
  Receipt Date: 20180416
  Transmission Date: 20180711
  Serious: Yes (Life-Threatening, Hospitalization)
  Sender: FDA-Public Use
  Company Number: ES-TEVA-2018-ES-881793

PATIENT
  Age: 13 Year
  Sex: Male
  Weight: 38.3 kg

DRUGS (5)
  1. DOXORUBICINA (202A) [Suspect]
     Active Substance: DOXORUBICIN HYDROCHLORIDE
     Indication: BURKITT^S LYMPHOMA STAGE IV
     Route: 042
     Dates: start: 20160426, end: 20160429
  2. VINCRISTINA SULFATO (809SU) [Interacting]
     Active Substance: VINCRISTINE SULFATE
     Indication: BURKITT^S LYMPHOMA STAGE IV
     Route: 042
     Dates: start: 20160426, end: 20160428
  3. RITUXIMAB (2814A) [Interacting]
     Active Substance: RITUXIMAB
     Indication: BURKITT^S LYMPHOMA STAGE IV
     Route: 042
     Dates: start: 20160426, end: 20160429
  4. CICLOFOSFAMIDA (120A) [Interacting]
     Active Substance: CYCLOPHOSPHAMIDE
     Indication: BURKITT^S LYMPHOMA STAGE IV
     Route: 042
     Dates: start: 20160426, end: 20160502
  5. METOTREXATO (418A) [Interacting]
     Active Substance: METHOTREXATE
     Indication: BURKITT^S LYMPHOMA STAGE IV
     Route: 042
     Dates: start: 20160426, end: 20160429

REACTIONS (3)
  - Drug interaction [Unknown]
  - Febrile neutropenia [Recovered/Resolved]
  - Stomatitis [Recovered/Resolved]

NARRATIVE: CASE EVENT DATE: 20160507
